FAERS Safety Report 8622643-1 (Version None)
Quarter: 2012Q3

REPORT INFORMATION
  Report Type: 
  Country: None (occurrence: None)
  Receive Date: 20120827
  Receipt Date: 20120817
  Transmission Date: 20120928
  Serious: No
  Sender: FDA-Public Use
  Company Number: US-009507513-1208USA008308

PATIENT

DRUGS (2)
  1. MAXALT [Suspect]
     Indication: MIGRAINE
     Dosage: 10 MG, UNK
     Route: 048
     Dates: start: 20120601
  2. TOPAMAX [Concomitant]
     Dosage: UNK

REACTIONS (2)
  - TUNNEL VISION [None]
  - ACCIDENT AT HOME [None]
